FAERS Safety Report 8560920-3 (Version None)
Quarter: 2012Q3

REPORT INFORMATION
  Report Type: 
  Country: None (occurrence: None)
  Receive Date: 20120727
  Receipt Date: 20120727
  Transmission Date: 20120928
  Serious: Yes (Hospitalization)
  Sender: FDA-Public Use
  Company Number: None

PATIENT
  Age: 75 Year
  Sex: Female
  Weight: 51.7 kg

DRUGS (11)
  1. WARFARIN SODIUM [Suspect]
     Indication: ATRIAL FIBRILLATION
     Dosage: 1 MG DAILY PO CHRONIC
     Route: 048
  2. VITAMIN D [Concomitant]
  3. LEVOTHYROXINE SODIUM [Concomitant]
  4. MAG [Concomitant]
  5. M.V.I. [Concomitant]
  6. METOPROLOL TARTRATE [Concomitant]
  7. SPIRONOLACTONE [Concomitant]
  8. FUROSEMIDE [Concomitant]
  9. PROTONIX [Concomitant]
  10. COLCHICINE [Concomitant]
  11. CA [Concomitant]

REACTIONS (4)
  - INTERNATIONAL NORMALISED RATIO INCREASED [None]
  - CHOLELITHIASIS [None]
  - HAEMORRHAGE [None]
  - DIVERTICULUM [None]
